FAERS Safety Report 5570163-3 (Version None)
Quarter: 2007Q4

REPORT INFORMATION
  Report Type: 
  Country: None (occurrence: None)
  Receive Date: 20071217
  Receipt Date: 20071210
  Transmission Date: 20080405
  Serious: Yes (Life-Threatening, Other)
  Sender: FDA-Public Use
  Company Number: 2007SP024611

PATIENT
  Age: 49 Year
  Sex: Male

DRUGS (3)
  1. TEMOZOLOMIDE [Suspect]
     Indication: GLIOBLASTOMA
     Dosage: PO
     Route: 048
     Dates: start: 20070801, end: 20071001
  2. DEXAMETHASONE (CON.) [Concomitant]
  3. RANITIDINE (CON.) [Concomitant]

REACTIONS (1)
  - STEVENS-JOHNSON SYNDROME [None]
